FAERS Safety Report 16632007 (Version 7)
Quarter: 2021Q4

REPORT INFORMATION
  Report Type: Spontaneous
  Country: US (occurrence: US)
  Receive Date: 20190725
  Receipt Date: 20211223
  Transmission Date: 20220303
  Serious: Yes (Other)
  Sender: FDA-Public Use
  Company Number: US-PFIZER INC-2019317494

PATIENT
  Age: 67 Year
  Sex: Female

DRUGS (1)
  1. PRISTIQ EXTENDED-RELEASE [Suspect]
     Active Substance: DESVENLAFAXINE SUCCINATE
     Indication: Body mass index increased
     Dosage: 50 MG, 1X/DAY
     Route: 048

REACTIONS (5)
  - Cerebrovascular accident [Unknown]
  - Off label use [Unknown]
  - Impaired driving ability [Unknown]
  - Dysgraphia [Unknown]
  - Mobility decreased [Unknown]
